FAERS Safety Report 6104377-0 (Version None)
Quarter: 2009Q1

REPORT INFORMATION
  Report Type: 
  Country: None (occurrence: None)
  Receive Date: 20090305
  Receipt Date: 20090224
  Transmission Date: 20090719
  Serious: Yes (Congenital Anomaly, Other)
  Sender: FDA-Public Use
  Company Number: ES-ABBOTT-09P-144-0498970-00

PATIENT
  Sex: Female

DRUGS (2)
  1. HUMIRA [Suspect]
     Indication: DRUG EXPOSURE DURING PREGNANCY
     Route: 064
     Dates: start: 20041004, end: 20080310
  2. HUMIRA [Concomitant]
     Indication: DRUG EXPOSURE DURING PREGNANCY
     Dates: start: 20040406

REACTIONS (1)
  - POLYDACTYLY [None]
